FAERS Safety Report 6664519-5 (Version None)
Quarter: 2010Q2

REPORT INFORMATION
  Report Type: 
  Country: None (occurrence: None)
  Receive Date: 20100401
  Receipt Date: 20100322
  Transmission Date: 20101027
  Serious: Yes (Death, Hospitalization)
  Sender: FDA-Public Use
  Company Number: US-PFIZER INC-2010026864

PATIENT
  Sex: Female
  Weight: 14.6 kg

DRUGS (5)
  1. GENOTROPIN [Suspect]
     Indication: GROWTH HORMONE DEFICIENCY
     Dosage: 0.2 MG, 1X/DAY
     Route: 058
     Dates: start: 20090901, end: 20100201
  2. LEVOTHYROXINE [Concomitant]
     Dosage: UNK
     Dates: start: 20090301, end: 20100301
  3. TOPAMAX [Concomitant]
  4. POLY-VI-SOL [Concomitant]
  5. CLARITIN [Concomitant]

REACTIONS (5)
  - CARDIAC ARREST [None]
  - HYPOTENSION [None]
  - RESPIRATORY FAILURE [None]
  - SEPTIC SHOCK [None]
  - URINE OUTPUT DECREASED [None]
